FAERS Safety Report 10609140 (Version 1)
Quarter: 2014Q4

REPORT INFORMATION
  Report Type: Spontaneous
  Country: DE (occurrence: DE)
  Receive Date: 20141126
  Receipt Date: 20141126
  Transmission Date: 20150529
  Serious: Yes (Other)
  Sender: FDA-Public Use
  Company Number: DE-ACCORD-027104

PATIENT
  Age: 1 Day
  Sex: Male
  Weight: 3.58 kg

DRUGS (4)
  1. QUETIAPINE [Suspect]
     Active Substance: QUETIAPINE
     Indication: BORDERLINE PERSONALITY DISORDER
     Dosage: (GW) 0-39.3
     Route: 064
     Dates: start: 20130920, end: 20140623
  2. VENLAFAXINE [Suspect]
     Active Substance: VENLAFAXINE HYDROCHLORIDE
     Indication: BORDERLINE PERSONALITY DISORDER
     Dosage: (GW) 0-39.3.
     Route: 064
     Dates: start: 20130920, end: 20140623
  3. FOLIO FORTE [Concomitant]
     Active Substance: FOLIC ACID\VITAMINS
     Indication: PROPHYLAXIS OF NEURAL TUBE DEFECT
     Dosage: 0.8 MG/D
     Route: 064
     Dates: start: 20130920, end: 20140623
  4. NEMEXIN [Concomitant]
     Indication: ALCOHOLISM
     Route: 064
     Dates: start: 20130920, end: 20131119

REACTIONS (6)
  - Foetal exposure during pregnancy [Unknown]
  - Respiratory arrest [None]
  - Heart rate decreased [None]
  - Maternal drugs affecting foetus [None]
  - Caesarean section [None]
  - Respiratory disorder neonatal [Recovered/Resolved]

NARRATIVE: CASE EVENT DATE: 20140623
